FAERS Safety Report 18980593 (Version 2)
Quarter: 2022Q2

REPORT INFORMATION
  Report Type: Spontaneous
  Country: US (occurrence: US)
  Receive Date: 20210308
  Receipt Date: 20220412
  Transmission Date: 20220721
  Serious: Yes (Other)
  Sender: FDA-Public Use
  Company Number: US-GLAXOSMITHKLINE-US2021GSK052989

PATIENT
  Sex: Male

DRUGS (42)
  1. ZANTAC [Suspect]
     Active Substance: RANITIDINE HYDROCHLORIDE
     Indication: Dyspepsia
     Dosage: 150 MG,OCCASIONAL
     Route: 065
     Dates: start: 198801, end: 201801
  2. ZANTAC [Suspect]
     Active Substance: RANITIDINE HYDROCHLORIDE
     Indication: Gastric ulcer
     Dosage: 300 MG,OCCASIONAL
     Route: 065
     Dates: start: 198801, end: 201801
  3. ZANTAC [Suspect]
     Active Substance: RANITIDINE HYDROCHLORIDE
     Dosage: OCCASIONAL|150 MG|BOTH
     Route: 065
     Dates: start: 198801, end: 201801
  4. ZANTAC [Suspect]
     Active Substance: RANITIDINE HYDROCHLORIDE
     Dosage: 300 MG
     Route: 065
     Dates: start: 198801, end: 201801
  5. ZANTAC [Suspect]
     Active Substance: RANITIDINE HYDROCHLORIDE
     Dosage: UNK
  6. ZANTAC [Suspect]
     Active Substance: RANITIDINE HYDROCHLORIDE
     Dosage: UNK
  7. ZANTAC [Suspect]
     Active Substance: RANITIDINE HYDROCHLORIDE
     Indication: Dyspepsia
     Dosage: 150 MG,OCCASIONAL
     Route: 065
     Dates: start: 198801, end: 201801
  8. ZANTAC [Suspect]
     Active Substance: RANITIDINE HYDROCHLORIDE
     Indication: Gastric ulcer
     Dosage: 300 MG,OCCASIONAL
     Route: 065
     Dates: start: 198801, end: 201801
  9. ZANTAC [Suspect]
     Active Substance: RANITIDINE HYDROCHLORIDE
     Dosage: OCCASIONAL|150 MG|BOTH
     Route: 065
     Dates: start: 198801, end: 201801
  10. ZANTAC [Suspect]
     Active Substance: RANITIDINE HYDROCHLORIDE
     Dosage: 300 MG
     Route: 065
     Dates: start: 198801, end: 201801
  11. ZANTAC [Suspect]
     Active Substance: RANITIDINE HYDROCHLORIDE
     Dosage: UNK
  12. ZANTAC [Suspect]
     Active Substance: RANITIDINE HYDROCHLORIDE
     Dosage: UNK
  13. RANITIDINE [Suspect]
     Active Substance: RANITIDINE
     Indication: Dyspepsia
     Dosage: 150 MG,OCCASIONAL
     Route: 065
     Dates: start: 198801, end: 201801
  14. RANITIDINE [Suspect]
     Active Substance: RANITIDINE
     Indication: Gastric ulcer
     Dosage: 300 MG,OCCASIONAL
     Route: 065
     Dates: start: 198801, end: 201801
  15. RANITIDINE [Suspect]
     Active Substance: RANITIDINE
     Dosage: OCCASIONAL|150 MG|BOTH
     Route: 065
     Dates: start: 198801, end: 201801
  16. RANITIDINE [Suspect]
     Active Substance: RANITIDINE
     Dosage: 300 MG
     Route: 065
     Dates: start: 198801, end: 201801
  17. RANITIDINE [Suspect]
     Active Substance: RANITIDINE
     Dosage: OCCASIONAL|150 MG|BOTH
     Route: 065
     Dates: start: 198801, end: 201801
  18. RANITIDINE [Suspect]
     Active Substance: RANITIDINE
     Dosage: 300 MG
     Route: 065
     Dates: start: 198801, end: 201801
  19. RANITIDINE [Suspect]
     Active Substance: RANITIDINE
     Indication: Dyspepsia
     Dosage: 150 MG,OCCASIONAL
     Route: 065
     Dates: start: 198801, end: 201801
  20. RANITIDINE [Suspect]
     Active Substance: RANITIDINE
     Indication: Gastric ulcer
     Dosage: 300 MG,OCCASIONAL
     Route: 065
     Dates: start: 198801, end: 201801
  21. RANITIDINE [Suspect]
     Active Substance: RANITIDINE
     Dosage: OCCASIONAL|150 MG|BOTH
     Route: 065
     Dates: start: 198801, end: 201801
  22. RANITIDINE [Suspect]
     Active Substance: RANITIDINE
     Dosage: 300 MG
     Route: 065
     Dates: start: 198801, end: 201801
  23. RANITIDINE [Suspect]
     Active Substance: RANITIDINE
     Dosage: UNK
  24. RANITIDINE [Suspect]
     Active Substance: RANITIDINE
     Dosage: UNK
  25. RANITIDINE [Suspect]
     Active Substance: RANITIDINE
     Indication: Dyspepsia
     Dosage: 150 MG,OCCASIONAL
     Route: 065
     Dates: start: 198801, end: 201801
  26. RANITIDINE [Suspect]
     Active Substance: RANITIDINE
     Indication: Gastric ulcer
     Dosage: 300 MG,OCCASIONAL
     Route: 065
     Dates: start: 198801, end: 201801
  27. RANITIDINE [Suspect]
     Active Substance: RANITIDINE
     Dosage: OCCASIONAL|150 MG|BOTH
     Route: 065
     Dates: start: 198801, end: 201801
  28. RANITIDINE [Suspect]
     Active Substance: RANITIDINE
     Dosage: 300 MG
     Route: 065
     Dates: start: 198801, end: 201801
  29. RANITIDINE [Suspect]
     Active Substance: RANITIDINE
     Dosage: UNK
  30. RANITIDINE [Suspect]
     Active Substance: RANITIDINE
     Dosage: UNK
  31. RANITIDINE [Suspect]
     Active Substance: RANITIDINE
     Indication: Dyspepsia
     Dosage: 150 MG,OCCASIONAL
     Route: 065
     Dates: start: 198801, end: 201801
  32. RANITIDINE [Suspect]
     Active Substance: RANITIDINE
     Indication: Gastric ulcer
     Dosage: 300 MG,OCCASIONAL
     Route: 065
     Dates: start: 198801, end: 201801
  33. RANITIDINE [Suspect]
     Active Substance: RANITIDINE
     Dosage: OCCASIONAL|150 MG|BOTH
     Route: 065
     Dates: start: 198801, end: 201801
  34. RANITIDINE [Suspect]
     Active Substance: RANITIDINE
     Dosage: 300 MG
     Route: 065
     Dates: start: 198801, end: 201801
  35. RANITIDINE [Suspect]
     Active Substance: RANITIDINE
     Dosage: UNK
  36. RANITIDINE [Suspect]
     Active Substance: RANITIDINE
     Dosage: UNK
  37. ZANTAC [Suspect]
     Active Substance: RANITIDINE HYDROCHLORIDE
     Indication: Dyspepsia
     Dosage: OCCASIONAL|150 MG|BOTH
     Route: 065
     Dates: start: 198801, end: 201801
  38. ZANTAC [Suspect]
     Active Substance: RANITIDINE HYDROCHLORIDE
     Indication: Gastric ulcer
     Dosage: 300 MG
     Route: 065
     Dates: start: 198801, end: 201801
  39. ZANTAC [Suspect]
     Active Substance: RANITIDINE HYDROCHLORIDE
     Dosage: UNK
  40. ZANTAC [Suspect]
     Active Substance: RANITIDINE HYDROCHLORIDE
     Dosage: UNK
  41. ZANTAC [Suspect]
     Active Substance: RANITIDINE HYDROCHLORIDE
     Dosage: UNK
  42. ZANTAC [Suspect]
     Active Substance: RANITIDINE HYDROCHLORIDE
     Dosage: UNK

REACTIONS (1)
  - Bladder cancer [Unknown]
